FAERS Safety Report 8894482 (Version 1)
Quarter: 2012Q4

REPORT INFORMATION
  Report Type: 
  Country: US (occurrence: US)
  Receive Date: 20121107
  Receipt Date: 20121107
  Transmission Date: 20130627
  Serious: No
  Sender: FDA-Public Use
  Company Number: US-AMGEN-USASP2011050779

PATIENT
  Age: 57 Year
  Sex: Male

DRUGS (10)
  1. ENBREL [Suspect]
     Indication: PRODUCT USED FOR UNKNOWN INDICATION
     Dosage: 50 mg, qwk
  2. ALLOPURINOL [Concomitant]
     Dosage: 100 mg, UNK
     Route: 048
  3. FOLIC ACID [Concomitant]
     Dosage: 1 mg, UNK
     Route: 048
  4. LEVOTHYROXIN [Concomitant]
     Dosage: 100 mug, UNK
     Route: 048
  5. MELOXICAM [Concomitant]
     Dosage: 15 mg, UNK
     Route: 048
  6. FISH OIL [Concomitant]
     Route: 048
  7. EXFORGE [Concomitant]
     Route: 048
  8. XANAX [Concomitant]
     Dosage: 1 mg, UNK
     Route: 048
  9. PREDNISONE [Concomitant]
     Dosage: 5 mg, UNK
     Route: 048
  10. PLAQUENIL                          /00072603/ [Concomitant]
     Dosage: 200 mg, UNK
     Route: 048

REACTIONS (2)
  - Blister [Unknown]
  - Mood altered [Unknown]
